FAERS Safety Report 13113023 (Version 5)
Quarter: 2017Q2

REPORT INFORMATION
  Report Type: Report from Study
  Country: US (occurrence: US)
  Receive Date: 20170113
  Receipt Date: 20170509
  Transmission Date: 20170830
  Serious: Yes (Congenital Anomaly, Other)
  Sender: FDA-Public Use
  Company Number: PHEH2017US001092

PATIENT
  Age: 0 Year
  Sex: Male
  Weight: 10 kg

DRUGS (1)
  1. GILENYA [Suspect]
     Active Substance: FINGOLIMOD HYDROCHLORIDE
     Indication: FOETAL EXPOSURE DURING PREGNANCY
     Dosage: MATERNAL DOSE:0.5 MG, QD
     Route: 064

REACTIONS (4)
  - Congenital torticollis [Recovered/Resolved]
  - Maternal exposure before pregnancy [Unknown]
  - Congenital inguinal hernia [Recovered/Resolved]
  - Cryptorchism [Recovered/Resolved]

NARRATIVE: CASE EVENT DATE: 201508
